FAERS Safety Report 5430388-4 (Version None)
Quarter: 2007Q3

REPORT INFORMATION
  Report Type: 
  Country: None (occurrence: None)
  Receive Date: 20070830
  Receipt Date: 20070821
  Transmission Date: 20080115
  Serious: Yes (Disabling)
  Sender: FDA-Public Use
  Company Number: NZ-JNJFOC-20070804074

PATIENT
  Sex: Female
  Weight: 58 kg

DRUGS (6)
  1. RISPERDAL [Suspect]
     Indication: DEMENTIA
     Route: 048
  2. EPILIM [Concomitant]
     Route: 048
  3. EPILIM [Concomitant]
     Indication: AGITATION
     Route: 048
  4. ACCUPRIL [Concomitant]
     Indication: HYPERTENSION
     Route: 048
  5. LIPEX [Concomitant]
     Indication: HYPERCHOLESTEROLAEMIA
     Route: 048
  6. PROPRANOLOL [Concomitant]
     Indication: HYPERTENSION

REACTIONS (1)
  - POSTURE ABNORMAL [None]
